FAERS Safety Report 4878254-7 (Version None)
Quarter: 2006Q1

REPORT INFORMATION
  Report Type: 
  Country: None (occurrence: None)
  Receive Date: 20060111
  Receipt Date: 20050510
  Transmission Date: 20060701
  Serious: Yes (Hospitalization, Disabling)
  Sender: FDA-Public Use
  Company Number: US-MERCK-0505USA01359

PATIENT
  Age: 61 Year
  Sex: Male
  Weight: 86 kg

DRUGS (1)
  1. VIOXX [Suspect]
     Indication: ARTHRITIS
     Route: 048
     Dates: start: 20010501, end: 20030501

REACTIONS (7)
  - BLOOD GLUCOSE INCREASED [None]
  - CEREBROVASCULAR ACCIDENT [None]
  - DIABETES MELLITUS NON-INSULIN-DEPENDENT [None]
  - DYSLIPIDAEMIA [None]
  - HERNIA [None]
  - HYPERTENSION [None]
  - THROMBOTIC STROKE [None]
